FAERS Safety Report 20328787 (Version 1)
Quarter: 2022Q1

REPORT INFORMATION
  Report Type: Spontaneous
  Country: FR (occurrence: None)
  Receive Date: 20220112
  Receipt Date: 20220112
  Transmission Date: 20220423
  Serious: Yes (Other)
  Sender: FDA-Public Use
  Company Number: FR-Merck Healthcare KGaA-9214626

PATIENT
  Age: 74 Year
  Sex: Female
  Weight: 52 kg

DRUGS (15)
  1. LEVOTHYROXINE [Suspect]
     Active Substance: LEVOTHYROXINE
     Indication: Hypothyroidism
     Dosage: 1 TAB PER DAY DURING 3 MONTHS
     Route: 048
     Dates: start: 20160801
  2. LEVOTHYROXINE [Suspect]
     Active Substance: LEVOTHYROXINE
     Dosage: ??? TAB PER DAY BEFORE BREAKFAST DURING 3 MONTHS
     Route: 048
     Dates: start: 20160801
  3. LEVOTHYROXINE [Suspect]
     Active Substance: LEVOTHYROXINE
     Dosage: 1 TAB PER DAY DURING 3 MONTHS
     Route: 048
     Dates: start: 20170313
  4. LEVOTHYROXINE [Suspect]
     Active Substance: LEVOTHYROXINE
     Dosage: 1 TAB PER DAY BEFORE BREAKFAST DURING 3 MONTHS
     Route: 048
     Dates: start: 20170313
  5. LEVOTHYROXINE [Suspect]
     Active Substance: LEVOTHYROXINE
     Dosage: 1 TAB PER DAY DURING 3 MONTHS
     Route: 048
     Dates: start: 20170704
  6. LEVOTHYROXINE [Suspect]
     Active Substance: LEVOTHYROXINE
     Dosage: ??? TAB PER DAY BEFORE BREAKFAST DURING 3 MONTHS
     Route: 048
     Dates: start: 20170704
  7. LEVOTHYROXINE [Suspect]
     Active Substance: LEVOTHYROXINE
     Dosage: 1 TAB PER DAY DURING 3 MONTHS
     Route: 048
     Dates: start: 20170908
  8. LEVOTHYROXINE [Suspect]
     Active Substance: LEVOTHYROXINE
     Dosage: 1 TAB PER DAY BEFORE BREAKFAST DURING 3 MONTHS
     Route: 048
     Dates: start: 20170908
  9. PROLIA [Suspect]
     Active Substance: DENOSUMAB
     Indication: Osteoporosis
  10. ACETAMINOPHEN [Concomitant]
     Active Substance: ACETAMINOPHEN
     Indication: Product used for unknown indication
     Dosage: 3 TABS PER DAY DURING 3 MONTHS
     Route: 048
     Dates: start: 20160801
  11. ACETAMINOPHEN [Concomitant]
     Active Substance: ACETAMINOPHEN
     Dosage: 3 TABS PER DAY DURING 3 MONTHS
     Route: 048
     Dates: start: 20170704
  12. ALPRAZOLAM [Concomitant]
     Active Substance: ALPRAZOLAM
     Indication: Product used for unknown indication
     Dosage: 1 TAB PER DAY DURING 1 MONTH
     Route: 048
     Dates: start: 20160801
  13. ALPRAZOLAM [Concomitant]
     Active Substance: ALPRAZOLAM
     Dosage: 1 TAB PER DAY DURING 1 MONTH
     Route: 048
     Dates: start: 20170704
  14. CHOLECALCIFEROL [Concomitant]
     Active Substance: CHOLECALCIFEROL
     Indication: Product used for unknown indication
     Dosage: CHOLECALCIFEROL 100,000 IU/2 ML,1 AMPOULE PER MONTH DURING 3 MONTHS
     Route: 048
     Dates: start: 20170313
  15. DIPROSONE [BETAMETHASONE SODIUM PHOSPHATE] [Concomitant]
     Indication: Product used for unknown indication
     Dosage: 1 TUBE
     Route: 061
     Dates: start: 20170704

REACTIONS (15)
  - Hyperaldosteronism [Unknown]
  - Hyponatraemia [Unknown]
  - Anxiety [Unknown]
  - Presyncope [Unknown]
  - Malaise [Unknown]
  - Dizziness [Unknown]
  - Fatigue [Unknown]
  - Balance disorder [Unknown]
  - Peripheral venous disease [Unknown]
  - Carotid arteriosclerosis [Unknown]
  - Malaise [Not Recovered/Not Resolved]
  - Emotional distress [Not Recovered/Not Resolved]
  - Irritability [Not Recovered/Not Resolved]
  - Muscular weakness [Unknown]
  - Insomnia [Unknown]

NARRATIVE: CASE EVENT DATE: 20170301
